FAERS Safety Report 10215716 (Version 1)
Quarter: 2014Q2

REPORT INFORMATION
  Report Type: Spontaneous
  Country: IT (occurrence: IT)
  Receive Date: 20140604
  Receipt Date: 20140604
  Transmission Date: 20141212
  Serious: Yes (Life-Threatening, Hospitalization, Other)
  Sender: FDA-Public Use
  Company Number: IT-ELI_LILLY_AND_COMPANY-IT201405010091

PATIENT
  Age: 78 Year
  Sex: Female

DRUGS (3)
  1. ZYPREXA [Suspect]
     Indication: BIPOLAR DISORDER
     Dosage: 140 MG, SINGLE
     Route: 048
     Dates: start: 20140521, end: 20140521
  2. HALDOL                             /00027401/ [Suspect]
     Indication: BIPOLAR DISORDER
     Dosage: 30 DF, SINGLE
     Route: 048
     Dates: start: 20140521, end: 20140521
  3. FLUCONAZOLE [Suspect]
     Indication: BIPOLAR DISORDER
     Dosage: 100 MG, UNKNOWN
     Route: 048
     Dates: start: 20140521, end: 20140521

REACTIONS (6)
  - Electrocardiogram QT prolonged [Unknown]
  - Hypertension [Unknown]
  - Tachyarrhythmia [Unknown]
  - Loss of consciousness [Unknown]
  - Suicide attempt [Unknown]
  - Overdose [Unknown]
